FAERS Safety Report 16607940 (Version 1)
Quarter: 2019Q3

REPORT INFORMATION
  Report Type: Spontaneous
  Country: US (occurrence: US)
  Receive Date: 20190719
  Receipt Date: 20190719
  Transmission Date: 20191004
  Serious: No
  Sender: FDA-Public Use
  Company Number: None

PATIENT
  Age: 52 Year
  Sex: Female
  Weight: 76.05 kg

DRUGS (8)
  1. EPINEPHRINE 0.3MG [Concomitant]
     Dates: start: 20190717
  2. MOTRIN 200MG [Concomitant]
     Dates: start: 20190717
  3. GAMMAGARD LIQUID [Suspect]
     Active Substance: HUMAN IMMUNOGLOBULIN G
     Indication: ENCEPHALITIS
     Dosage: ?          OTHER FREQUENCY:DAILY FOR 4 DAYS;?
     Route: 041
     Dates: start: 20190717, end: 20190718
  4. LAB WORK CBC/CMP [Concomitant]
     Dates: start: 20190717
  5. BENADRYL 25MG [Concomitant]
     Dates: start: 20190717
  6. SODIUM CHLORIDE 250ML [Concomitant]
     Dates: start: 20190717
  7. SODIUM FLUSH [Concomitant]
  8. CLARITIN [Concomitant]
     Active Substance: LORATADINE
     Dates: start: 20190717

REACTIONS (1)
  - Blood pressure increased [None]

NARRATIVE: CASE EVENT DATE: 20190718
